FAERS Safety Report 12389812 (Version 2)
Quarter: 2016Q3

REPORT INFORMATION
  Report Type: Report from Study
  Country: US (occurrence: US)
  Receive Date: 20160520
  Receipt Date: 20160701
  Transmission Date: 20161109
  Serious: Yes (Hospitalization)
  Sender: FDA-Public Use
  Company Number: US-ACTELION-A-US2016-134861

PATIENT
  Age: 52 Year
  Sex: Female

DRUGS (3)
  1. OPSUMIT [Suspect]
     Active Substance: MACITENTAN
     Indication: PULMONARY ARTERIAL HYPERTENSION
     Dosage: 10 MG, QD
     Route: 048
     Dates: end: 20160501
  2. SILDENAFIL. [Concomitant]
     Active Substance: SILDENAFIL
  3. NORVASC [Concomitant]
     Active Substance: AMLODIPINE BESYLATE

REACTIONS (6)
  - Dialysis [Not Recovered/Not Resolved]
  - Respiratory failure [Recovered/Resolved]
  - Transfusion [Not Recovered/Not Resolved]
  - Insomnia [Unknown]
  - Fluid overload [Unknown]
  - Anaemia [Not Recovered/Not Resolved]
